FAERS Safety Report 7491147-4 (Version None)
Quarter: 2011Q2

REPORT INFORMATION
  Report Type: 
  Country: None (occurrence: None)
  Receive Date: 20110519
  Receipt Date: 20110510
  Transmission Date: 20111010
  Serious: Yes (Other)
  Sender: FDA-Public Use
  Company Number: CN-ASTRAZENECA-2011SE27620

PATIENT

DRUGS (1)
  1. GEFITINIB [Suspect]
     Route: 048

REACTIONS (1)
  - ACUTE LUNG INJURY [None]
